FAERS Safety Report 16975810 (Version 1)
Quarter: 2019Q4

REPORT INFORMATION
  Report Type: Report from Study
  Country: AU (occurrence: AU)
  Receive Date: 20191030
  Receipt Date: 20191030
  Transmission Date: 20200122
  Serious: Yes (Life-Threatening, Hospitalization, Disabling, Other)
  Sender: FDA-Public Use
  Company Number: AU-SEATTLE GENETICS-2019SGN01045

PATIENT
  Age: 26 Year
  Sex: Female
  Weight: 88 kg

DRUGS (4)
  1. GEMCITABINE. [Suspect]
     Active Substance: GEMCITABINE
     Dosage: 5586 MILLIGRAM
     Route: 065
     Dates: start: 20181021
  2. ECULIZUMAB [Suspect]
     Active Substance: ECULIZUMAB
     Indication: HODGKIN^S DISEASE
     Dosage: UNK
     Route: 065
  3. BRENTUXIMAB VEDOTIN-MPI [Suspect]
     Active Substance: BRENTUXIMAB VEDOTIN
     Dosage: 150 MG, UNK
     Route: 042
  4. GEMCITABINE. [Suspect]
     Active Substance: GEMCITABINE
     Indication: HODGKIN^S DISEASE
     Dosage: 5586 MILLIGRAM
     Route: 065
     Dates: start: 20181016

REACTIONS (3)
  - Pneumonitis [Recovered/Resolved with Sequelae]
  - Multiple organ dysfunction syndrome [Recovered/Resolved]
  - Atypical haemolytic uraemic syndrome [Recovered/Resolved]

NARRATIVE: CASE EVENT DATE: 20190108
